FAERS Safety Report 24905707 (Version 1)
Quarter: 2025Q1

REPORT INFORMATION
  Report Type: Report from Study
  Country: US (occurrence: US)
  Receive Date: 20250130
  Receipt Date: 20250130
  Transmission Date: 20250408
  Serious: No
  Sender: HRA PHARMA
  Company Number: US-ORG100014127-2024000263

PATIENT
  Age: 39 Year
  Sex: Male

DRUGS (13)
  1. METOPIRONE [Suspect]
     Active Substance: METYRAPONE
     Indication: Product used for unknown indication
     Dosage: 250 MG 02 CAPSULES EVERY 6 HOURS
     Dates: start: 202409
  2. Atorvastatin tablet 40mg [Concomitant]
     Indication: Product used for unknown indication
  3. bactrim ds tab 800-160 mg po tab [Concomitant]
     Indication: Product used for unknown indication
  4. calcium tablet 500mg [Concomitant]
     Indication: Product used for unknown indication
  5. DICLOFENAC [Concomitant]
     Active Substance: DICLOFENAC
     Indication: Product used for unknown indication
  6. duloxetine capsule 30mg [Concomitant]
     Indication: Product used for unknown indication
  7. ESOMEPRAZOLE MAGNESIUM [Concomitant]
     Active Substance: ESOMEPRAZOLE MAGNESIUM
     Indication: Product used for unknown indication
  8. gabapentin tablet 600mg [Concomitant]
     Indication: Product used for unknown indication
  9. ketoconazole tablet 200mg [Concomitant]
     Indication: Product used for unknown indication
  10. sennosides tablet 8.6mg [Concomitant]
     Indication: Product used for unknown indication
  11. spironolactone 100 mg tablet [Concomitant]
     Indication: Product used for unknown indication
  12. tizanidine tablet 2mg [Concomitant]
     Indication: Product used for unknown indication
  13. vitamin D3 cap 5000 unit [Concomitant]
     Indication: Product used for unknown indication

REACTIONS (1)
  - Off label use [Not Recovered/Not Resolved]

NARRATIVE: CASE EVENT DATE: 20240901
